FAERS Safety Report 8740088 (Version 4)
Quarter: 2014Q1

REPORT INFORMATION
  Report Type: Spontaneous
  Country: FR (occurrence: FR)
  Receive Date: 20120823
  Receipt Date: 20140207
  Transmission Date: 20141002
  Serious: Yes (Disabling)
  Sender: FDA-Public Use
  Company Number: FR-MERCK-1208FRA007419

PATIENT
  Age: 70 Year
  Sex: 0

DRUGS (3)
  1. SINEMET 100 MG / 10 MG COMPRIME SECABLE [Suspect]
     Indication: PARKINSON^S DISEASE
     Dosage: 1 DF, TID
     Route: 048
     Dates: end: 20120709
  2. AZILECT [Suspect]
     Dosage: UNK
     Route: 048
  3. REQUIP [Suspect]
     Indication: PARKINSON^S DISEASE
     Dosage: 14 MG, QD
     Route: 048

REACTIONS (2)
  - Bursitis [Not Recovered/Not Resolved]
  - Rotator cuff syndrome [Not Recovered/Not Resolved]
